FAERS Safety Report 7404491-3 (Version None)
Quarter: 2011Q2

REPORT INFORMATION
  Report Type: 
  Country: None (occurrence: None)
  Receive Date: 20110408
  Receipt Date: 20110405
  Transmission Date: 20111010
  Serious: Yes (Disabling, Other)
  Sender: FDA-Public Use
  Company Number: US-PFIZER INC-2010170338

PATIENT
  Sex: Female

DRUGS (3)
  1. KLONOPIN [Concomitant]
     Indication: ANXIETY
     Dosage: UNK
     Dates: start: 20070724, end: 20090901
  2. ZOLOFT [Concomitant]
     Indication: DEPRESSION
     Dosage: UNK
     Dates: start: 19990101, end: 20090701
  3. CHANTIX [Suspect]
     Indication: SMOKING CESSATION THERAPY
     Dosage: UNK (0.5-1 MG)
     Dates: start: 20070814, end: 20070914

REACTIONS (8)
  - SUICIDE ATTEMPT [None]
  - EMOTIONAL DISTRESS [None]
  - DEPRESSION [None]
  - AGGRESSION [None]
  - ABNORMAL BEHAVIOUR [None]
  - INTENTIONAL OVERDOSE [None]
  - ANXIETY [None]
  - MENTAL DISORDER [None]
